FAERS Safety Report 10360235 (Version 1)
Quarter: 2014Q3

REPORT INFORMATION
  Report Type: Spontaneous
  Country: FR (occurrence: None)
  Receive Date: 20140730
  Receipt Date: 20140730
  Transmission Date: 20150326
  Serious: Yes (Hospitalization)
  Sender: FDA-Public Use
  Company Number: AUR-APL-2014-08036

PATIENT
  Age: 84 Year
  Sex: Female

DRUGS (15)
  1. LEVOTHYROX (LEVOTHYROXINE SODIUM) [Concomitant]
     Active Substance: LEVOTHYROXINE SODIUM
  2. AMLOR (AMLODIPINE BESILATE) [Concomitant]
     Active Substance: AMLODIPINE BESYLATE
  3. DURAGESIC (FENTANYL) [Concomitant]
  4. SERESTA(OXAZEPAM) [Concomitant]
  5. DAFALGAN (PARACETAMOL) [Concomitant]
  6. METFORMIN [Concomitant]
     Active Substance: METFORMIN HYDROCHLORIDE
  7. TRIATEC / (MACROGOL 3350, POTASSIUM CHLORIDE, SODIUM BICARBONATE, SODIUM CHLORIDE) [Concomitant]
  8. VANCOMYCIN HYDROCHLORIDE) [Suspect]
     Active Substance: VANCOMYCIN HYDROCHLORIDE
     Indication: MUSCLE ABSCESS
     Route: 042
     Dates: start: 20140505, end: 20140512
  9. DEROXAT (PAROXETINE HYDROCHLORIDE) [Concomitant]
  10. CIPROFLOXACIN. [Suspect]
     Active Substance: CIPROFLOXACIN
     Indication: MUSCLE ABSCESS
     Dosage: 800 MG, UNK, ORAL  05/12/2015 TO 05/.19/2014 THERAPY DATES
     Route: 048
     Dates: start: 20140512, end: 20140519
  11. PIPERACILLINE /TAZOBACTAM [Suspect]
     Active Substance: PIPERACILLIN SODIUM\TAZOBACTAM SODIUM
     Indication: MUSCLE ABSCESS
     Route: 042
     Dates: start: 20140505, end: 20140519
  12. ZOPICLONE [Concomitant]
     Active Substance: ZOPICLONE
  13. EDUCTYL (POTASSIUM BITARTRATE, SODIUM BICARBONATE) [Concomitant]
  14. CIPROFLOXACIN (CIPROFLOXACIN) [Suspect]
     Active Substance: CIPROFLOXACIN
     Indication: MUSCLE ABSCESS
     Route: 042
     Dates: start: 20140507, end: 20140512
  15. MATRIFEN (FENTANYL) [Concomitant]

REACTIONS (4)
  - Thrombocytopenia [None]
  - Overdose [None]
  - Rectal haemorrhage [None]
  - Epistaxis [None]

NARRATIVE: CASE EVENT DATE: 20140509
